FAERS Safety Report 9594978 (Version 1)
Quarter: 2013Q4

REPORT INFORMATION
  Report Type: Spontaneous
  Country: US (occurrence: None)
  Receive Date: 20131002
  Receipt Date: 20131002
  Transmission Date: 20140711
  Serious: Yes (Hospitalization)
  Sender: FDA-Public Use
  Company Number: AUR-APL-2013-08123

PATIENT
  Age: 5 Month
  Sex: Female

DRUGS (7)
  1. LEVETIRACETAM [Suspect]
     Dosage: (40 MG/KG, 1 IN 1 D), UNKNOWN
  2. FOSPHENYTOIN SODIUM [Suspect]
     Dosage: 30 MG/KG, 120 MG, UNKNOWN
  3. PHENOBARBITAL [Suspect]
     Dosage: (30 MG/KG), UNKNOWN
  4. PENTOBARBITAL [Suspect]
     Dosage: 1 MG/KG/H OVER 12 H; , UNKNOWN
  5. MANNITOL [Concomitant]
  6. MIDAZOLAM [Suspect]
  7. LORAZEPAM [Suspect]

REACTIONS (8)
  - Drug ineffective [None]
  - Hypotension [None]
  - Intestinal ischaemia [None]
  - Hypokalaemia [None]
  - Coagulopathy [None]
  - Convulsion [None]
  - Pneumatosis intestinalis [None]
  - Status epilepticus [None]
